FAERS Safety Report 7573271-0 (Version None)
Quarter: 2011Q2

REPORT INFORMATION
  Report Type: 
  Country: None (occurrence: None)
  Receive Date: 20110627
  Receipt Date: 20110614
  Transmission Date: 20111010
  Serious: Yes (Hospitalization)
  Sender: FDA-Public Use
  Company Number: PHHY2011SE52140

PATIENT
  Sex: Female

DRUGS (9)
  1. EXELON [Suspect]
     Indication: DEMENTIA
     Dosage: 1.5 MG,
     Route: 048
     Dates: start: 20110303, end: 20110314
  2. ATARAX [Suspect]
     Dates: end: 20110323
  3. GLIBENKLAMID [Concomitant]
  4. HYDROCHLOROTHIAZIDE [Concomitant]
  5. LOSARTAN POTASSIUM [Concomitant]
  6. DUROFERON [Concomitant]
  7. LAKTULOSE [Concomitant]
  8. ASPIRIN [Concomitant]
  9. METFORMIN HCL [Concomitant]

REACTIONS (5)
  - PAIN IN EXTREMITY [None]
  - DYSKINESIA [None]
  - ANXIETY [None]
  - GRIMACING [None]
  - DRY MOUTH [None]
